FAERS Safety Report 5371249-9 (Version None)
Quarter: 2007Q2

REPORT INFORMATION
  Report Type: 
  Country: None (occurrence: None)
  Receive Date: 20070615
  Receipt Date: 20070411
  Transmission Date: 20071010
  Serious: Yes (Hospitalization)
  Sender: FDA-Public Use
  Company Number: 200712567US

PATIENT
  Age: 79 Year
  Sex: Male

DRUGS (8)
  1. LANTUS [Suspect]
     Indication: DIABETES MELLITUS NON-INSULIN-DEPENDENT
     Dosage: 10 U;
     Dates: start: 20070228
  2. OPTICLIK [Suspect]
     Indication: DIABETES MELLITUS NON-INSULIN-DEPENDENT
     Dates: start: 20070228
  3. PIOGLITAZONE [Concomitant]
  4. CAPTOPRIL [Concomitant]
  5. PREDNISONE [Concomitant]
  6. FLUTICASONE PROPIONATE [Concomitant]
  7. SALMETEROL XINAFOATE (ADVAIR) [Suspect]
  8. SALBUTAMOL [Concomitant]

REACTIONS (2)
  - HYPERGLYCAEMIA [None]
  - MEDICATION ERROR [None]
